FAERS Safety Report 9410094 (Version 2)
Quarter: 2013Q3

REPORT INFORMATION
  Report Type: Spontaneous
  Country: US (occurrence: US)
  Receive Date: 20130719
  Receipt Date: 20130812
  Transmission Date: 20140515
  Serious: No
  Sender: FDA-Public Use
  Company Number: US-JNJFOC-20130709714

PATIENT
  Sex: Male
  Weight: 75.3 kg

DRUGS (7)
  1. DURAGESIC [Suspect]
     Indication: BACK PAIN
     Route: 062
     Dates: start: 20100207
  2. DURAGESIC [Suspect]
     Indication: BACK PAIN
     Route: 062
     Dates: start: 2012
  3. DURAGESIC [Suspect]
     Indication: SPINAL COLUMN STENOSIS
     Route: 062
     Dates: start: 2012
  4. DURAGESIC [Suspect]
     Indication: SPINAL COLUMN STENOSIS
     Route: 062
     Dates: start: 20100207
  5. METHADONE [Concomitant]
     Indication: BACK PAIN
     Dosage: Q 12
     Route: 065
     Dates: start: 20110325
  6. ACETYLSALICYLIC ACID [Concomitant]
     Route: 065
  7. RELAFEN [Concomitant]
     Dosage: 1/2 TAB QHS
     Route: 065

REACTIONS (2)
  - Hyperhidrosis [Unknown]
  - Drug administration error [Unknown]
